FAERS Safety Report 10713627 (Version 1)
Quarter: 2015Q1

REPORT INFORMATION
  Report Type: Spontaneous
  Country: US (occurrence: US)
  Receive Date: 20150115
  Receipt Date: 20150115
  Transmission Date: 20150721
  Serious: Yes (Death)
  Sender: FDA-Public Use
  Company Number: US-BAYER-2015-005463

PATIENT
  Age: 44 Year
  Sex: Female

DRUGS (8)
  1. DIPHENHYDRAMINE HYDROCHLORIDE. [Suspect]
     Active Substance: DIPHENHYDRAMINE HYDROCHLORIDE
     Route: 048
  2. ROMILAR [Suspect]
     Active Substance: DEXTROMETHORPHAN HYDROBROMIDE
     Route: 048
  3. HYDROMORPHONE [Suspect]
     Active Substance: HYDROMORPHONE
     Route: 048
  4. METHYLPHENIDATE [Suspect]
     Active Substance: METHYLPHENIDATE
     Route: 048
  5. CLONAZEPAM. [Suspect]
     Active Substance: CLONAZEPAM
     Route: 048
  6. DOXEPIN [Suspect]
     Active Substance: DOXEPIN
     Route: 048
  7. TRAMADOL [Suspect]
     Active Substance: TRAMADOL
     Route: 048
  8. ACETAMINOPHEN. [Suspect]
     Active Substance: ACETAMINOPHEN
     Route: 048

REACTIONS (1)
  - Drug abuse [Fatal]
